FAERS Safety Report 19820661 (Version 3)
Quarter: 2022Q1

REPORT INFORMATION
  Report Type: Report from Study
  Country: US (occurrence: US)
  Receive Date: 20210913
  Receipt Date: 20220126
  Transmission Date: 20220423
  Serious: Yes (Hospitalization, Other)
  Sender: FDA-Public Use
  Company Number: US-SA-2021SA236358

PATIENT
  Age: 71 Year
  Sex: Male

DRUGS (2)
  1. DUPILUMAB [Suspect]
     Active Substance: DUPILUMAB
     Indication: Asthma
     Dosage: 600 MG, 1X
     Route: 058
     Dates: start: 20210617, end: 20210617
  2. DUPILUMAB [Suspect]
     Active Substance: DUPILUMAB
     Dosage: 300 MG, QOW
     Route: 058
     Dates: start: 2021, end: 20211230

REACTIONS (10)
  - COVID-19 [Recovering/Resolving]
  - COVID-19 pneumonia [Recovering/Resolving]
  - Immunodeficiency [Unknown]
  - Atrial fibrillation [Unknown]
  - Heart valve incompetence [Unknown]
  - Cardiac disorder [Unknown]
  - Product use issue [Unknown]
  - Nasopharyngitis [Unknown]
  - Fatigue [Unknown]
  - Lung disorder [Unknown]

NARRATIVE: CASE EVENT DATE: 20210101
